FAERS Safety Report 22537554 (Version 1)
Quarter: 2023Q2

REPORT INFORMATION
  Report Type: Spontaneous
  Country: PR (occurrence: PR)
  Receive Date: 20230608
  Receipt Date: 20230608
  Transmission Date: 20230722
  Serious: Yes (Other)
  Sender: FDA-Public Use
  Company Number: PR-BRISTOL-MYERS SQUIBB COMPANY-2023-080357

PATIENT
  Age: 89 Year
  Sex: Female
  Weight: 68.04 kg

DRUGS (5)
  1. REVLIMID [Suspect]
     Active Substance: LENALIDOMIDE
     Indication: Myelodysplastic syndrome
     Route: 048
     Dates: start: 20220411
  2. RETACRIT [Concomitant]
     Active Substance: EPOETIN ALFA-EPBX
     Dosage: 3000 UN
  3. IRON [Concomitant]
     Active Substance: IRON
     Dosage: 325 (65 FE)MG
     Route: 048
  4. NORVASC [Concomitant]
     Active Substance: AMLODIPINE BESYLATE
     Route: 048
  5. METOPROLOL SUCCINATE [Concomitant]
     Active Substance: METOPROLOL SUCCINATE
     Dosage: ER
     Route: 048

REACTIONS (3)
  - Drug ineffective [Unknown]
  - Haemoglobin decreased [Not Recovered/Not Resolved]
  - Gastric antral vascular ectasia [Not Recovered/Not Resolved]

NARRATIVE: CASE EVENT DATE: 20230401
